FAERS Safety Report 14213986 (Version 1)
Quarter: 2017Q4

REPORT INFORMATION
  Report Type: Report from Study
  Country: FR (occurrence: FR)
  Receive Date: 20171122
  Receipt Date: 20171122
  Transmission Date: 20180321
  Serious: Yes (Other)
  Sender: FDA-Public Use
  Company Number: FR-CIPLA LTD.-2017FR20845

PATIENT

DRUGS (6)
  1. CARBOPLATIN. [Suspect]
     Active Substance: CARBOPLATIN
     Indication: OVARIAN SERTOLI-LEYDIG CELL TUMOUR
     Dosage: UNK
     Route: 065
  2. EVEROLIMUS. [Suspect]
     Active Substance: EVEROLIMUS
     Indication: OVARIAN SERTOLI-LEYDIG CELL TUMOUR
     Dosage: UNK
     Route: 065
  3. CARBOPLATIN. [Suspect]
     Active Substance: CARBOPLATIN
     Indication: SERTOLI CELL TESTICULAR TUMOUR
  4. EVEROLIMUS. [Suspect]
     Active Substance: EVEROLIMUS
     Indication: SERTOLI CELL TESTICULAR TUMOUR
  5. PACLITAXEL. [Suspect]
     Active Substance: PACLITAXEL
     Indication: OVARIAN SERTOLI-LEYDIG CELL TUMOUR
     Dosage: UNK
     Route: 065
  6. PACLITAXEL. [Suspect]
     Active Substance: PACLITAXEL
     Indication: SERTOLI CELL TESTICULAR TUMOUR

REACTIONS (2)
  - Off label use [Unknown]
  - Disease progression [Unknown]
